FAERS Safety Report 5662202-6 (Version None)
Quarter: 2008Q1

REPORT INFORMATION
  Report Type: 
  Country: None (occurrence: None)
  Receive Date: 20080201
  Receipt Date: 20071213
  Transmission Date: 20080703
  Serious: Yes (Other)
  Sender: FDA-Public Use
  Company Number: 165290USA

PATIENT
  Age: 62 Year
  Sex: Female

DRUGS (2)
  1. IFOSFAMIDE [Suspect]
     Indication: UTERINE CANCER
     Dosage: 2 GM/500ML NORMAL SALINE (2 GRAM), INTRAVENOUS DRIP
     Route: 041
     Dates: start: 20071212, end: 20071212
  2. CISPLATIN [Suspect]
     Indication: UTERINE CANCER
     Dosage: INTRAVENOUS DRIP
     Route: 041
     Dates: start: 20071212, end: 20071212

REACTIONS (3)
  - ENCEPHALOPATHY [None]
  - INCOHERENT [None]
  - RESTLESSNESS [None]
